FAERS Safety Report 23606571 (Version 1)
Quarter: 2024Q1

REPORT INFORMATION
  Report Type: Spontaneous
  Country: RU (occurrence: RU)
  Receive Date: 20240307
  Receipt Date: 20240307
  Transmission Date: 20240409
  Serious: Yes (Other)
  Sender: FDA-Public Use
  Company Number: RU-MYLANLABS-2024M1019493

PATIENT
  Sex: Female

DRUGS (2)
  1. XALATAN [Suspect]
     Active Substance: LATANOPROST
     Indication: Open angle glaucoma
     Dosage: UNK
     Route: 065
  2. LATANOPROST\TIMOLOL MALEATE [Suspect]
     Active Substance: LATANOPROST\TIMOLOL MALEATE
     Indication: Open angle glaucoma
     Dosage: UNK
     Route: 065

REACTIONS (2)
  - Angina pectoris [Recovered/Resolved]
  - Therapeutic product effect incomplete [Unknown]

NARRATIVE: CASE EVENT DATE: 20240101
